FAERS Safety Report 8494621-7 (Version None)
Quarter: 2012Q3

REPORT INFORMATION
  Report Type: 
  Country: None (occurrence: None)
  Receive Date: 20120709
  Receipt Date: 20120704
  Transmission Date: 20120928
  Serious: Yes (Disabling)
  Sender: FDA-Public Use
  Company Number: CA-B.I. PHARMACEUTICALS,INC./RIDGEFIELD-2012-CN-00232CN

PATIENT
  Age: 83 Year
  Sex: Male
  Weight: 68.95 kg

DRUGS (4)
  1. GARLIC [Concomitant]
     Dosage: CAPSULES 3 PER DAY ORALLY
     Route: 048
  2. MICARDIS HCT [Suspect]
     Indication: HYPERTENSION
     Dosage: 1 RT
     Route: 048
     Dates: start: 20060101
  3. ADALAT XL - SRT [Concomitant]
     Dosage: 30 MG
     Route: 048
  4. GLUCOSAMINE [Concomitant]
     Dosage: 3-4 CAPSULES PER DAY
     Route: 065

REACTIONS (4)
  - ARTERIAL OCCLUSIVE DISEASE [None]
  - BLOOD PRESSURE INCREASED [None]
  - INTERMITTENT CLAUDICATION [None]
  - PAIN IN EXTREMITY [None]
